FAERS Safety Report 9969752 (Version 1)
Quarter: 2014Q1

REPORT INFORMATION
  Report Type: Spontaneous
  Country: US (occurrence: None)
  Receive Date: 20140304
  Receipt Date: 20140304
  Transmission Date: 20141002
  Serious: Yes (Other)
  Sender: FDA-Public Use
  Company Number: None

PATIENT
  Age: 38 Year
  Sex: Female
  Weight: 86.18 kg

DRUGS (2)
  1. LUPRON [Suspect]
     Indication: ENDOMETRIOSIS
     Dates: start: 20080222, end: 20080312
  2. LUPRON [Suspect]
     Indication: UTERINE FIBROSIS
     Dates: start: 20080222, end: 20080312

REACTIONS (1)
  - Tinnitus [None]
